FAERS Safety Report 20487403 (Version 2)
Quarter: 2022Q1

REPORT INFORMATION
  Report Type: Report from Study
  Country: BR (occurrence: BR)
  Receive Date: 20220218
  Receipt Date: 20220303
  Transmission Date: 20220423
  Serious: Yes (Hospitalization)
  Sender: FDA-Public Use
  Company Number: BR-ABBVIE-22K-020-4281274-00

PATIENT
  Age: 36 Year
  Sex: Female
  Weight: 74 kg

DRUGS (10)
  1. SKYRIZI [Suspect]
     Active Substance: RISANKIZUMAB-RZAA
     Indication: Psoriasis
     Route: 058
     Dates: start: 20211216
  2. SKYRIZI [Suspect]
     Active Substance: RISANKIZUMAB-RZAA
     Route: 058
     Dates: start: 202201
  3. DIAZEPAM [Concomitant]
     Active Substance: DIAZEPAM
     Indication: Sedative therapy
  4. AMITRIPTYLINE [Concomitant]
     Active Substance: AMITRIPTYLINE
     Indication: Antidepressant therapy
  5. KETAMINE [Concomitant]
     Active Substance: KETAMINE
     Indication: Antidepressant therapy
  6. GLIFAGE [Concomitant]
     Active Substance: METFORMIN HYDROCHLORIDE
     Indication: Diabetes mellitus
  7. NPH INSULIN [Concomitant]
     Active Substance: INSULIN BEEF
     Indication: Diabetes mellitus
  8. GLICLAZIDE [Concomitant]
     Active Substance: GLICLAZIDE
     Indication: Diabetes mellitus
  9. LOSARTAN [Concomitant]
     Active Substance: LOSARTAN
     Indication: Product used for unknown indication
  10. SPIRONOLACTONE [Concomitant]
     Active Substance: SPIRONOLACTONE
     Indication: Product used for unknown indication

REACTIONS (4)
  - Mental disorder [Recovering/Resolving]
  - Emotional disorder [Recovering/Resolving]
  - Weight decreased [Unknown]
  - Malaise [Recovering/Resolving]

NARRATIVE: CASE EVENT DATE: 20220201
